FAERS Safety Report 7719615-8 (Version None)
Quarter: 2011Q3

REPORT INFORMATION
  Report Type: 
  Country: None (occurrence: None)
  Receive Date: 20110830
  Receipt Date: 20110818
  Transmission Date: 20111222
  Serious: Yes (Hospitalization)
  Sender: FDA-Public Use
  Company Number: FR-ASTRAZENECA-2011SE49730

PATIENT
  Sex: Male

DRUGS (13)
  1. COSOPT [Suspect]
     Route: 047
     Dates: start: 20101101, end: 20110121
  2. DIPRIVAN [Suspect]
     Indication: ANAESTHESIA
     Route: 042
     Dates: start: 20101123, end: 20101123
  3. DIAMOX SRC [Suspect]
     Route: 048
     Dates: start: 20101220, end: 20101223
  4. TOBRADEX [Suspect]
     Route: 047
     Dates: start: 20101126, end: 20101220
  5. TOBRADEX [Suspect]
     Route: 047
     Dates: start: 20101224
  6. TRUSOPT [Suspect]
     Route: 047
     Dates: start: 20101101, end: 20110121
  7. TRAVATAN [Concomitant]
     Route: 047
     Dates: start: 20101101
  8. GENTAMICIN [Concomitant]
     Route: 042
     Dates: start: 20101217, end: 20101220
  9. ACETAMINOPHEN [Concomitant]
     Route: 048
  10. KAYEXALATE [Concomitant]
     Route: 048
     Dates: end: 20101224
  11. DIAMOX SRC [Suspect]
     Route: 048
     Dates: start: 20101123
  12. SUFENTA PRESERVATIVE FREE [Suspect]
     Indication: ANAESTHESIA
     Route: 042
     Dates: start: 20101123, end: 20101123
  13. ROCEPHIN [Concomitant]
     Route: 042
     Dates: start: 20101217, end: 20101220

REACTIONS (2)
  - CONJUNCTIVITIS [None]
  - DRUG RASH WITH EOSINOPHILIA AND SYSTEMIC SYMPTOMS [None]
